APPROVED DRUG PRODUCT: CALCIUM GLUCONATE IN SODIUM CHLORIDE
Active Ingredient: CALCIUM GLUCONATE
Strength: 2GM/100ML (20MG/ML)
Dosage Form/Route: SOLUTION;INTRAVENOUS
Application: A219619 | Product #002 | TE Code: AP
Applicant: SAGENT PHARMACEUTICALS
Approved: Dec 30, 2025 | RLD: No | RS: No | Type: RX